FAERS Safety Report 16443595 (Version 1)
Quarter: 2019Q2

REPORT INFORMATION
  Report Type: Spontaneous
  Country: US (occurrence: US)
  Receive Date: 20190618
  Receipt Date: 20190618
  Transmission Date: 20190711
  Serious: No
  Sender: FDA-Public Use
  Company Number: US-STRIDES ARCOLAB LIMITED-2019SP004055

PATIENT
  Age: 9 Year
  Sex: Female

DRUGS (1)
  1. ALBENDAZOLE. [Suspect]
     Active Substance: ALBENDAZOLE
     Indication: ENTEROBIASIS
     Dosage: UNK
     Route: 065

REACTIONS (1)
  - Off label use [Unknown]
